FAERS Safety Report 18893412 (Version 1)
Quarter: 2021Q1

REPORT INFORMATION
  Report Type: Spontaneous
  Country: US (occurrence: US)
  Receive Date: 20210215
  Receipt Date: 20210215
  Transmission Date: 20210420
  Serious: No
  Sender: FDA-Public Use
  Company Number: US-BAYER-2021-055607

PATIENT
  Age: 54 Year
  Sex: Male

DRUGS (1)
  1. GADAVIST [Suspect]
     Active Substance: GADOBUTROL
     Indication: MAGNETIC RESONANCE IMAGING
     Dosage: 8.5 ML, ONCE
     Route: 042
     Dates: start: 20210125, end: 20210125

REACTIONS (5)
  - Erythema [Recovered/Resolved]
  - Contraindicated product administered [None]
  - Urticaria [Recovered/Resolved]
  - Tremor [Recovered/Resolved]
  - Pruritus [Recovered/Resolved]

NARRATIVE: CASE EVENT DATE: 20210125
